FAERS Safety Report 4363970-6 (Version None)
Quarter: 2004Q2

REPORT INFORMATION
  Report Type: 
  Country: None (occurrence: None)
  Receive Date: 20040511
  Receipt Date: 20040423
  Transmission Date: 20050107
  Serious: Yes (Death)
  Sender: FDA-Public Use
  Company Number: 205612

PATIENT
  Age: 49 Year
  Sex: Female
  Weight: 65 kg

DRUGS (4)
  1. HERCEPTIN [Suspect]
     Indication: BREAST CANCER METASTATIC
     Dosage: 2 MG/KG, SINGLE, INTRAVENOUS; 150 MG, Q2W, INTRAVNOUS;  150 MG, Q2W, INTRAVENOUS
     Route: 042
     Dates: start: 20010207, end: 20010207
  2. HERCEPTIN [Suspect]
     Indication: BREAST CANCER METASTATIC
     Dosage: 2 MG/KG, SINGLE, INTRAVENOUS; 150 MG, Q2W, INTRAVNOUS;  150 MG, Q2W, INTRAVENOUS
     Route: 042
     Dates: start: 20010214, end: 20030514
  3. HERCEPTIN [Suspect]
     Indication: BREAST CANCER METASTATIC
     Dosage: 2 MG/KG, SINGLE, INTRAVENOUS; 150 MG, Q2W, INTRAVNOUS;  150 MG, Q2W, INTRAVENOUS
     Route: 042
     Dates: start: 20030701
  4. TAXOL [Concomitant]

REACTIONS (3)
  - ABDOMINAL PAIN LOWER [None]
  - DIARRHOEA [None]
  - VOMITING [None]
